FAERS Safety Report 8179987-X (Version None)
Quarter: 2012Q1

REPORT INFORMATION
  Report Type: 
  Country: None (occurrence: None)
  Receive Date: 20120229
  Receipt Date: 20120214
  Transmission Date: 20120608
  Serious: No
  Sender: FDA-Public Use
  Company Number: DEP_00573_2012

PATIENT
  Sex: Male
  Weight: 79.3795 kg

DRUGS (3)
  1. COREG [Concomitant]
  2. GRALISE [Suspect]
     Indication: POST HERPETIC NEURALGIA
     Dosage: (PER STARTER PACK DIRECTIONS ORAL)
     Route: 048
     Dates: start: 20111218, end: 20111220
  3. OXYCODONE HCL [Concomitant]

REACTIONS (1)
  - DYSURIA [None]
